FAERS Safety Report 24367826 (Version 2)
Quarter: 2024Q4

REPORT INFORMATION
  Report Type: Spontaneous
  Country: FR (occurrence: FR)
  Receive Date: 20240926
  Receipt Date: 20241008
  Transmission Date: 20250115
  Serious: Yes (Other)
  Sender: PFIZER
  Company Number: FR-PFIZER INC-PV202400062561

PATIENT
  Age: 86 Year
  Sex: Male

DRUGS (2)
  1. IBRANCE [Suspect]
     Active Substance: PALBOCICLIB
     Indication: Breast cancer
     Dosage: 75 MG, 1X/DAY
     Route: 048
     Dates: start: 20240503, end: 20240519
  2. LETROZOLE [Suspect]
     Active Substance: LETROZOLE
     Indication: Breast cancer
     Dosage: 2.5 MG, 1X/DAY
     Route: 048
     Dates: start: 20240503, end: 20240519

REACTIONS (23)
  - Erectile dysfunction [Recovered/Resolved]
  - Fatigue [Recovering/Resolving]
  - Anxiety [Not Recovered/Not Resolved]
  - Dry skin [Recovered/Resolved]
  - Dizziness [Unknown]
  - Diarrhoea [Recovered/Resolved]
  - Hot flush [Recovering/Resolving]
  - Pruritus [Unknown]
  - Platelet count decreased [Unknown]
  - Nausea [Recovered/Resolved]
  - Decreased appetite [Recovered/Resolved]
  - Palpitations [Recovered/Resolved]
  - Vision blurred [Recovering/Resolving]
  - Stomatitis [Recovered/Resolved]
  - Dyspnoea [Unknown]
  - Oedema peripheral [Recovered/Resolved]
  - Insomnia [Unknown]
  - Memory impairment [Unknown]
  - Hyperhidrosis [Unknown]
  - Malaise [Unknown]
  - Oesophageal pain [Unknown]
  - Gastrooesophageal reflux disease [Unknown]
  - Rash maculo-papular [Unknown]

NARRATIVE: CASE EVENT DATE: 20240513
